FAERS Safety Report 18659169 (Version 2)
Quarter: 2021Q1

REPORT INFORMATION
  Report Type: Spontaneous
  Country: JP (occurrence: JP)
  Receive Date: 20201223
  Receipt Date: 20210326
  Transmission Date: 20210419
  Serious: Yes (Hospitalization, Other)
  Sender: FDA-Public Use
  Company Number: JP-SEATTLE GENETICS-2020SGN05671

PATIENT
  Age: 64 Year
  Sex: Female
  Weight: 45 kg

DRUGS (12)
  1. DOXORUBICIN HYDROCHLORIDE. [Suspect]
     Active Substance: DOXORUBICIN HYDROCHLORIDE
     Indication: HODGKIN^S DISEASE STAGE III
     Dosage: 38 MILLIGRAM, Q2WEEKS
     Route: 041
     Dates: start: 20190807, end: 20190920
  2. G LASTA [Concomitant]
     Active Substance: PEGFILGRASTIM
     Indication: COLONY STIMULATING FACTOR THERAPY
     Dosage: UNK
     Route: 065
     Dates: start: 20190823, end: 20190823
  3. LEVOFLOXACIN HEMIHYDRATE [Concomitant]
     Active Substance: LEVOFLOXACIN
     Indication: INFECTION PROPHYLAXIS
     Dosage: UNK
     Route: 065
     Dates: start: 20190815, end: 20190822
  4. ADCETRIS [Suspect]
     Active Substance: BRENTUXIMAB VEDOTIN
     Dosage: 55 MILLIGRAM, Q3WEEKS
     Route: 042
     Dates: start: 20191011, end: 20200831
  5. ESANBUTOL [ETHAMBUTOL DIHYDROCHLORIDE] [Concomitant]
     Active Substance: ETHAMBUTOL HYDROCHLORIDE
     Indication: INFECTION PROPHYLAXIS
     Dosage: UNK
     Route: 065
     Dates: start: 20190816
  6. ADCETRIS [Suspect]
     Active Substance: BRENTUXIMAB VEDOTIN
     Indication: HODGKIN^S DISEASE STAGE III
     Dosage: 63 MILLIGRAM, Q2WEEKS
     Route: 042
     Dates: start: 20190807, end: 20190920
  7. CLARITHROMYCIN. [Concomitant]
     Active Substance: CLARITHROMYCIN
     Indication: INFECTION PROPHYLAXIS
     Dosage: UNK
     Route: 065
     Dates: start: 20190816
  8. DACARBAZINE. [Suspect]
     Active Substance: DACARBAZINE
     Indication: HODGKIN^S DISEASE STAGE III
     Dosage: 570 MILLIGRAM, Q2WEEKS
     Route: 041
     Dates: start: 20190807, end: 20190920
  9. FILGRASTIM [Concomitant]
     Active Substance: FILGRASTIM
     Indication: COLONY STIMULATING FACTOR THERAPY
     Dosage: UNK
     Route: 065
     Dates: start: 20190813, end: 20191002
  10. ERYTHROCIN [ERYTHROMYCIN ETHYLSUCCINATE] [Concomitant]
     Indication: INFECTION PROPHYLAXIS
     Dosage: UNK
     Route: 065
     Dates: start: 20190808
  11. BAKTAR [Concomitant]
     Active Substance: SULFAMETHOXAZOLE\TRIMETHOPRIM
     Indication: INFECTION PROPHYLAXIS
     Dosage: UNK
     Route: 065
     Dates: start: 20190822
  12. VINBLASTINE SULFATE. [Suspect]
     Active Substance: VINBLASTINE SULFATE
     Indication: HODGKIN^S DISEASE STAGE III
     Dosage: 9 MILLIGRAM, Q2WEEKS
     Route: 041
     Dates: start: 20190807, end: 20190920

REACTIONS (2)
  - Diarrhoea [Recovering/Resolving]
  - Hyponatraemia [Recovered/Resolved]

NARRATIVE: CASE EVENT DATE: 20190813
